FAERS Safety Report 6444584-0 (Version None)
Quarter: 2009Q4

REPORT INFORMATION
  Report Type: 
  Country: None (occurrence: None)
  Receive Date: 20091118
  Receipt Date: 20091001
  Transmission Date: 20100525
  Serious: No
  Sender: FDA-Public Use
  Company Number: A0809945A

PATIENT
  Age: 92 Year
  Sex: Female

DRUGS (4)
  1. COREG CR [Suspect]
     Indication: HYPERTENSION
     Dosage: 10MG IN THE MORNING
     Route: 048
     Dates: start: 20090913
  2. DIOVAN [Concomitant]
  3. SYNTHROID [Concomitant]
  4. VITAMINS [Concomitant]

REACTIONS (5)
  - ANXIETY [None]
  - DRUG INEFFECTIVE [None]
  - EMOTIONAL DISORDER [None]
  - GAIT DISTURBANCE [None]
  - MUSCLE SPASMS [None]
